FAERS Safety Report 5854728-7 (Version None)
Quarter: 2008Q3

REPORT INFORMATION
  Report Type: 
  Country: None (occurrence: None)
  Receive Date: 20080822
  Receipt Date: 20071009
  Transmission Date: 20090109
  Serious: No
  Sender: FDA-Public Use
  Company Number: US-ABBOTT-07P-163-0420661-00

PATIENT
  Sex: Female
  Weight: 52.21 kg

DRUGS (2)
  1. SYNTHROID [Suspect]
     Indication: HYPOTHYROIDISM
     Route: 048
     Dates: start: 20061001
  2. SYNTHROID [Suspect]
     Route: 048
     Dates: start: 20051001, end: 20061001

REACTIONS (5)
  - ANXIETY [None]
  - DEPRESSION [None]
  - DRUG INEFFECTIVE [None]
  - FATIGUE [None]
  - INCREASED APPETITE [None]
